APPROVED DRUG PRODUCT: DILTIAZEM HYDROCHLORIDE
Active Ingredient: DILTIAZEM HYDROCHLORIDE
Strength: 120MG
Dosage Form/Route: CAPSULE, EXTENDED RELEASE;ORAL
Application: A206997 | Product #001 | TE Code: AB2
Applicant: ACCORD HEALTHCARE INC
Approved: Apr 28, 2020 | RLD: No | RS: No | Type: RX